FAERS Safety Report 21916545 (Version 2)
Quarter: 2023Q1

REPORT INFORMATION
  Report Type: Spontaneous
  Country: US (occurrence: US)
  Receive Date: 20230126
  Receipt Date: 20230228
  Transmission Date: 20230418
  Serious: Yes (Other)
  Sender: FDA-Public Use
  Company Number: US-PFIZER INC-PV202300015802

PATIENT
  Age: 52 Year
  Sex: Female

DRUGS (1)
  1. IBRANCE [Suspect]
     Active Substance: PALBOCICLIB
     Dosage: UNK

REACTIONS (7)
  - Neutropenia [Unknown]
  - Leukopenia [Unknown]
  - Irritability [Unknown]
  - Fatigue [Unknown]
  - Initial insomnia [Unknown]
  - Headache [Unknown]
  - Fatigue [Unknown]
